FAERS Safety Report 19787111 (Version 2)
Quarter: 2021Q4

REPORT INFORMATION
  Report Type: Report from Study
  Country: BR (occurrence: BR)
  Receive Date: 20210903
  Receipt Date: 20211007
  Transmission Date: 20220303
  Serious: Yes (Other)
  Sender: FDA-Public Use
  Company Number: NVSC2021BR199944

PATIENT
  Age: 49 Year
  Sex: Female

DRUGS (4)
  1. FEMARA [Suspect]
     Active Substance: LETROZOLE
     Indication: Breast cancer
     Dosage: UNK
     Route: 065
     Dates: start: 202010, end: 202105
  2. FEMARA [Suspect]
     Active Substance: LETROZOLE
     Dosage: UNK, QD
     Route: 048
     Dates: start: 20201127, end: 20210601
  3. IBRANCE [Concomitant]
     Active Substance: PALBOCICLIB
     Indication: Breast cancer
     Dosage: UNK
     Route: 065
     Dates: start: 202010
  4. IBRANCE [Concomitant]
     Active Substance: PALBOCICLIB
     Dosage: UNK, QD
     Route: 048
     Dates: start: 20201127, end: 20210601

REACTIONS (10)
  - Metastases to liver [Unknown]
  - Vulvovaginal dryness [Not Recovered/Not Resolved]
  - Carbohydrate antigen 15-3 increased [Recovered/Resolved]
  - Skin exfoliation [Unknown]
  - Weight decreased [Recovered/Resolved]
  - Blood glucose abnormal [Unknown]
  - Dry skin [Unknown]
  - Diarrhoea [Unknown]
  - Burning sensation mucosal [Not Recovered/Not Resolved]
  - Alopecia [Not Recovered/Not Resolved]

NARRATIVE: CASE EVENT DATE: 20210401
